FAERS Safety Report 8561377-9 (Version None)
Quarter: 2012Q3

REPORT INFORMATION
  Report Type: 
  Country: None (occurrence: None)
  Receive Date: 20120802
  Receipt Date: 20120723
  Transmission Date: 20120928
  Serious: Yes (Death, Hospitalization)
  Sender: FDA-Public Use
  Company Number: US-GLAXOSMITHKLINE-A0719241A

PATIENT
  Age: 51 Year
  Sex: Female
  Weight: 104.5 kg

DRUGS (8)
  1. GLYBURIDE [Concomitant]
  2. ZYPREXA [Concomitant]
  3. VIOXX [Concomitant]
  4. FLUOXETINE HCL [Concomitant]
  5. AMARYL [Concomitant]
  6. AVANDIA [Suspect]
     Indication: TYPE 2 DIABETES MELLITUS
     Dosage: 8MG PER DAY
     Route: 048
     Dates: start: 19990729, end: 20050901
  7. CELEBREX [Concomitant]
  8. DOXEPIN [Concomitant]

REACTIONS (6)
  - CARDIAC ARREST [None]
  - CEREBRAL INFARCTION [None]
  - TRANSIENT ISCHAEMIC ATTACK [None]
  - MYOCARDIAL INFARCTION [None]
  - ARTERIOSCLEROSIS CORONARY ARTERY [None]
  - CEREBROVASCULAR ACCIDENT [None]
